FAERS Safety Report 6538009-4 (Version None)
Quarter: 2010Q1

REPORT INFORMATION
  Report Type: 
  Country: None (occurrence: None)
  Receive Date: 20100111
  Receipt Date: 20091228
  Transmission Date: 20100710
  Serious: Yes (Death)
  Sender: FDA-Public Use
  Company Number: WAES 0912DNK00007

PATIENT
  Age: 38 Year
  Sex: Male

DRUGS (4)
  1. CRIXIVAN [Suspect]
     Indication: HIV INFECTION
  2. LAMIVUDINE [Suspect]
     Indication: HIV INFECTION
  3. ZIDOVUDINE [Suspect]
     Indication: HIV INFECTION
  4. RITONAVIR [Suspect]
     Indication: HIV INFECTION

REACTIONS (1)
  - LUNG NEOPLASM MALIGNANT [None]
